FAERS Safety Report 9034419 (Version 3)
Quarter: 2013Q4

REPORT INFORMATION
  Report Type: Spontaneous
  Country: GB (occurrence: None)
  Receive Date: 20130111
  Receipt Date: 20131015
  Transmission Date: 20140711
  Serious: Yes (Hospitalization)
  Sender: FDA-Public Use
  Company Number: 1547672

PATIENT
  Age: 73 Year
  Sex: Female

DRUGS (4)
  1. PIPERACILLIN AND TAZOBACTAM [Suspect]
     Indication: PERITONITIS BACTERIAL
     Dosage: (NOT OTHERWISE SPECIFIED)
     Route: 042
     Dates: end: 20110504
  2. CIPROFLOXACIN [Suspect]
     Indication: PNEUMONIA
     Dates: start: 20110215, end: 20110303
  3. OMEPRAZOLE [Suspect]
     Indication: PRODUCT USED FOR UNKNOWN INDICATION
  4. PIPERACILLIN AND TAZOBACTAM [Suspect]
     Indication: PNEUMONIA
     Dates: start: 20110211, end: 20110215

REACTIONS (3)
  - Clostridium difficile infection [None]
  - Intestinal dilatation [None]
  - Gastrointestinal toxicity [None]
